FAERS Safety Report 19945263 (Version 1)
Quarter: 2021Q4

REPORT INFORMATION
  Report Type: Spontaneous
  Country: CN (occurrence: CN)
  Receive Date: 20211011
  Receipt Date: 20211011
  Transmission Date: 20220303
  Serious: Yes (Other)
  Sender: FDA-Public Use
  Company Number: CN-BAXTER-2021BAX029270

PATIENT
  Age: 66 Year
  Sex: Female
  Weight: 81 kg

DRUGS (12)
  1. CYCLOPHOSPHAMIDE [Suspect]
     Active Substance: CYCLOPHOSPHAMIDE
     Indication: Breast cancer
     Dosage: CYCLOPHOSPHAMIDE FOR INJECTION 0.8G + 0.9% NS 100ML.
     Route: 042
     Dates: start: 20200827, end: 20200827
  2. CYCLOPHOSPHAMIDE [Suspect]
     Active Substance: CYCLOPHOSPHAMIDE
     Dosage: DOSE RE-INTRODUCED
     Route: 042
  3. SODIUM CHLORIDE [Suspect]
     Active Substance: SODIUM CHLORIDE
     Indication: Medication dilution
     Dosage: CYCLOPHOSPHAMIDE FOR INJECTION 0.8G + 0.9% NS 100ML.
     Route: 041
     Dates: start: 20200827, end: 20200827
  4. SODIUM CHLORIDE [Suspect]
     Active Substance: SODIUM CHLORIDE
     Dosage: DOCETAXEL INJECTION 120 MG + 0.9% NS 250ML
     Route: 041
     Dates: start: 20200827, end: 20200827
  5. SODIUM CHLORIDE [Suspect]
     Active Substance: SODIUM CHLORIDE
     Dosage: EPIRUBICIN HYDROCHLORIDE FOR INJECTION 60 MG + 0.9% NS 50ML + STERILE WATER FOR INJECTION 30ML
     Route: 041
     Dates: start: 20200827, end: 20200827
  6. SODIUM CHLORIDE [Suspect]
     Active Substance: SODIUM CHLORIDE
     Dosage: DOSE REINTRODUCED (DILUTION FOR CYCLOPHOSPHAMIDE, DOCETAXEL, EPIRUBICIN HYDROCHLORIDE)
     Route: 041
  7. STERILE WATER FOR INJECTION [Suspect]
     Active Substance: WATER
     Indication: Medication dilution
     Dosage: EPIRUBICIN HYDROCHLORIDE FOR INJECTION 60 MG + 0.9% NS 50ML + STERILE WATER FOR INJECTION 30ML
     Route: 041
     Dates: start: 20200827, end: 20200827
  8. STERILE WATER FOR INJECTION [Suspect]
     Active Substance: WATER
     Dosage: DOSE REINTRODUCED
     Route: 041
  9. DOCETAXEL [Suspect]
     Active Substance: DOCETAXEL
     Indication: Breast cancer
     Dosage: DOCETAXEL INJECTION 120 MG + 0.9% NS 250ML
     Route: 041
     Dates: start: 20200827, end: 20200827
  10. DOCETAXEL [Suspect]
     Active Substance: DOCETAXEL
     Dosage: DOSE RE-INTRODUCED
     Route: 041
  11. EPIRUBICIN HYDROCHLORIDE [Suspect]
     Active Substance: EPIRUBICIN HYDROCHLORIDE
     Indication: Breast cancer
     Dosage: EPIRUBICIN HYDROCHLORIDE FOR INJECTION 60 MG + 0.9% NS 50ML + STERILE WATER FOR INJECTION 30ML
     Route: 041
     Dates: start: 20200827, end: 20200827
  12. EPIRUBICIN HYDROCHLORIDE [Suspect]
     Active Substance: EPIRUBICIN HYDROCHLORIDE
     Dosage: DOSE RE-INTRODUCED
     Route: 041

REACTIONS (1)
  - Myelosuppression [Recovered/Resolved]

NARRATIVE: CASE EVENT DATE: 20200907
